FAERS Safety Report 11686657 (Version 2)
Quarter: 2016Q4

REPORT INFORMATION
  Report Type: Spontaneous
  Country: US (occurrence: US)
  Receive Date: 20151030
  Receipt Date: 20161122
  Transmission Date: 20170206
  Serious: No
  Sender: FDA-Public Use
  Company Number: US-PFIZER INC-2015364999

PATIENT
  Age: 45 Year
  Sex: Female

DRUGS (9)
  1. EFFEXOR [Suspect]
     Active Substance: VENLAFAXINE HYDROCHLORIDE
     Dosage: UNK
  2. CALCIUM 600 [Concomitant]
     Dosage: 1200 MG, DAILY
     Route: 048
  3. ALPRAZOLAM. [Concomitant]
     Active Substance: ALPRAZOLAM
     Dosage: 0.5 MG, AS NEEDED
     Route: 048
     Dates: start: 20140212, end: 20151106
  4. PHENTERMINE HCL [Concomitant]
     Active Substance: PHENTERMINE HYDROCHLORIDE
     Dosage: 37.5 MG, DAILY
     Route: 048
     Dates: start: 20150616, end: 20151106
  5. NORTRIPTYLINE [Suspect]
     Active Substance: NORTRIPTYLINE
     Indication: DEPRESSION
     Dosage: 100 MG, 1X/DAY(HS)
     Route: 048
     Dates: start: 201501
  6. VITAMIN D3 [Concomitant]
     Active Substance: CHOLECALCIFEROL
     Indication: VITAMIN D DEFICIENCY
     Dosage: 5000 IU, DAILY
     Route: 048
  7. LYRICA [Concomitant]
     Active Substance: PREGABALIN
     Dosage: 100 MG, 2X/DAY
     Route: 048
     Dates: start: 20150406, end: 20151106
  8. VENLAFAXINE XR [Suspect]
     Active Substance: VENLAFAXINE HYDROCHLORIDE
     Dosage: 75 MG, DAILY
     Route: 048
  9. NORTRIPTYLINE [Suspect]
     Active Substance: NORTRIPTYLINE
     Dosage: 25 MG, UNK
     Route: 048

REACTIONS (9)
  - Joint instability [Unknown]
  - Limb injury [Unknown]
  - Muscle tightness [Unknown]
  - Fall [Unknown]
  - Vision blurred [Unknown]
  - Amnesia [Unknown]
  - Cognitive disorder [Unknown]
  - Depressed mood [Unknown]
  - Weight increased [Unknown]
